FAERS Safety Report 5391972-X (Version None)
Quarter: 2007Q3

REPORT INFORMATION
  Report Type: 
  Country: None (occurrence: None)
  Receive Date: 20070720
  Receipt Date: 20070716
  Transmission Date: 20080115
  Serious: Yes (Life-Threatening, Hospitalization)
  Sender: FDA-Public Use
  Company Number: PHFR2007GB02148

PATIENT
  Age: 16 Year
  Sex: Female
  Weight: 110 kg

DRUGS (8)
  1. CLOZARIL [Suspect]
     Indication: POST-TRAUMATIC STRESS DISORDER
     Dosage: 300MG / DAY
     Route: 048
     Dates: start: 20070418, end: 20070512
  2. CLOZARIL [Suspect]
     Dosage: 275MG / DAY
     Route: 048
     Dates: start: 20070601
  3. EPILIM [Concomitant]
     Indication: MOOD ALTERED
     Dosage: 1200MG / DAY
     Route: 048
     Dates: start: 20051206
  4. FYBOGEL [Concomitant]
     Indication: CONSTIPATION
     Dosage: 1 DF, QD
     Route: 050
  5. MEBEVERINE [Concomitant]
     Indication: IRRITABLE BOWEL SYNDROME
     Dosage: 135 MG, TID
     Route: 048
     Dates: start: 20041214
  6. SCOPODERM [Concomitant]
     Indication: SALIVARY HYPERSECRETION
     Dosage: 1 DF, Q72H
     Route: 061
  7. TRAZODONE HYDROCHLORIDE [Concomitant]
     Indication: DEPRESSED MOOD
     Dosage: 300MG / DAY
     Route: 048
     Dates: start: 20061201
  8. ZYPREXA [Concomitant]
     Indication: PSYCHOTIC DISORDER
     Dosage: 15MG / DAY
     Route: 048
     Dates: start: 20070116

REACTIONS (6)
  - CONSTIPATION [None]
  - HAEMOLYTIC ANAEMIA [None]
  - IRRITABLE BOWEL SYNDROME [None]
  - MENTAL DISORDER [None]
  - MOOD ALTERED [None]
  - SALIVARY HYPERSECRETION [None]
